FAERS Safety Report 6203829-2 (Version None)
Quarter: 2009Q2

REPORT INFORMATION
  Report Type: 
  Country: None (occurrence: None)
  Receive Date: 20090522
  Receipt Date: 20090511
  Transmission Date: 20091009
  Serious: Yes (Hospitalization, Disabling)
  Sender: FDA-Public Use
  Company Number: 2009S1008285

PATIENT
  Age: 38 Year
  Sex: Female

DRUGS (12)
  1. METHYLPREDNISOLONE [Suspect]
     Indication: LUNG TRANSPLANT REJECTION
     Dosage: 500 MG; DAILY; INTRAVENOUS
     Route: 042
     Dates: start: 20031201
  2. PREDNISONE [Suspect]
     Indication: IMMUNOSUPPRESSANT DRUG THERAPY
     Dosage: 5 MG; DAILY;
  3. AZATHIOPRINE [Suspect]
     Indication: IMMUNOSUPPRESSANT DRUG THERAPY
  4. TACROLIMUS [Suspect]
     Indication: IMMUNOSUPPRESSANT DRUG THERAPY
  5. ANTITHYMOCYTE GLOBULIN [Suspect]
     Indication: LUNG TRANSPLANT REJECTION
     Dosage: 1.5 MG/KG; DAILY;
  6. ALEMTUZUMAB [Suspect]
     Dosage: 30 MG;
     Dates: start: 20060501
  7. BACTRIM [Concomitant]
  8. GANCICLOVIR [Concomitant]
  9. BACTRIM [Concomitant]
  10. VORICONAZOLE [Concomitant]
  11. AMPHOTERICIN B [Concomitant]
  12. GANCICLOVIR [Concomitant]

REACTIONS (12)
  - ATAXIA [None]
  - CATHETER SEPSIS [None]
  - CONFUSIONAL STATE [None]
  - DYSARTHRIA [None]
  - GAIT DISTURBANCE [None]
  - LUNG INFILTRATION [None]
  - MOVEMENT DISORDER [None]
  - PNEUMONITIS [None]
  - PROGRESSIVE MULTIFOCAL LEUKOENCEPHALOPATHY [None]
  - PYREXIA [None]
  - TRANSPLANT REJECTION [None]
  - VISUAL IMPAIRMENT [None]
